FAERS Safety Report 6356792-8 (Version None)
Quarter: 2009Q3

REPORT INFORMATION
  Report Type: 
  Country: None (occurrence: None)
  Receive Date: 20090915
  Receipt Date: 20090909
  Transmission Date: 20100115
  Serious: Yes (Hospitalization)
  Sender: FDA-Public Use
  Company Number: JP-ABBOTT-09P-087-0582186-00

PATIENT
  Sex: Female
  Weight: 48 kg

DRUGS (5)
  1. HUMIRA [Suspect]
     Indication: RHEUMATOID ARTHRITIS
     Route: 058
     Dates: start: 20090416, end: 20090416
  2. PREDNISOLONE [Concomitant]
     Indication: RHEUMATOID ARTHRITIS
     Route: 048
  3. DICLOFENAC SODIUM [Concomitant]
     Indication: RHEUMATOID ARTHRITIS
     Route: 048
     Dates: end: 20090527
  4. MISOPROSTOL [Concomitant]
     Indication: PROPHYLAXIS AGAINST GASTROINTESTINAL ULCER
     Route: 048
     Dates: end: 20090527
  5. METHYLSALICYLATE/CAMPHOR/CAPSICUM [Concomitant]
     Indication: RHEUMATOID ARTHRITIS
     Route: 061
     Dates: end: 20090527

REACTIONS (3)
  - DIFFUSE LARGE B-CELL LYMPHOMA [None]
  - NON-HODGKIN'S LYMPHOMA [None]
  - SPLENOMEGALY [None]
